FAERS Safety Report 25483049 (Version 1)
Quarter: 2025Q2

REPORT INFORMATION
  Report Type: Spontaneous
  Country: GB (occurrence: GB)
  Receive Date: 20250626
  Receipt Date: 20250626
  Transmission Date: 20250716
  Serious: Yes (Life-Threatening, Hospitalization)
  Sender: GALPHARM INTERNATIONAL
  Company Number: None

PATIENT
  Sex: Female

DRUGS (3)
  1. ACETAMINOPHEN [Suspect]
     Active Substance: ACETAMINOPHEN
     Indication: Product used for unknown indication
     Route: 048
  2. CODEINE [Suspect]
     Active Substance: CODEINE
     Indication: Product used for unknown indication
     Route: 048
  3. MIRTAZAPINE [Suspect]
     Active Substance: MIRTAZAPINE
     Indication: Product used for unknown indication
     Route: 048

REACTIONS (9)
  - Intentional overdose [Recovering/Resolving]
  - Acute hepatic failure [Recovering/Resolving]
  - Metabolic acidosis [Recovering/Resolving]
  - Intracranial pressure increased [Recovered/Resolved]
  - Brain oedema [Recovered/Resolved]
  - IIIrd nerve paralysis [Recovered/Resolved]
  - Hepatic encephalopathy [Recovered/Resolved]
  - Vasoplegia syndrome [Unknown]
  - Thrombocytopenia [Recovering/Resolving]
